FAERS Safety Report 25288334 (Version 1)
Quarter: 2025Q2

REPORT INFORMATION
  Report Type: Spontaneous
  Country: US (occurrence: US)
  Receive Date: 20250509
  Receipt Date: 20250509
  Transmission Date: 20250716
  Serious: No
  Sender: Karo Pharma
  Company Number: US-Karo Pharma-2176450

PATIENT
  Age: 39 Year
  Sex: Female
  Weight: 74.39 kg

DRUGS (9)
  1. TERBINAFINE [Suspect]
     Active Substance: TERBINAFINE
     Indication: Product used for unknown indication
  2. AZELASTINE. [Suspect]
     Active Substance: AZELASTINE HYDROCHLORIDE
  3. ISOTRETINOIN [Concomitant]
     Active Substance: ISOTRETINOIN
  4. FLUOCINOLONE ACETONIDE [Suspect]
     Active Substance: FLUOCINOLONE ACETONIDE
  5. ALBENDAZOLE [Suspect]
     Active Substance: ALBENDAZOLE
  6. MINOCYCLINE [Suspect]
     Active Substance: MINOCYCLINE HYDROCHLORIDE
  7. FERROUS FUMARATE [Suspect]
     Active Substance: FERROUS FUMARATE
  8. MONTELUKAST [Suspect]
     Active Substance: MONTELUKAST
  9. CLOBETASOL [Suspect]
     Active Substance: CLOBETASOL

REACTIONS (3)
  - Drug ineffective [Unknown]
  - Skin plaque [Unknown]
  - Potassium hydroxide preparation positive [Unknown]
